FAERS Safety Report 8784798 (Version 1)
Quarter: 2012Q4

REPORT INFORMATION
  Report Type: 
  Country: SE (occurrence: SE)
  Receive Date: 20120914
  Receipt Date: 20120914
  Transmission Date: 20130627
  Serious: Yes (Hospitalization)
  Sender: FDA-Public Use
  Company Number: SE-PFIZER INC-2012223994

PATIENT
  Age: 88 Year
  Sex: Male
  Weight: 86.1 kg

DRUGS (17)
  1. GENOTROPIN [Suspect]
     Indication: GROWTH HORMONE DEFICIENCY
     Dosage: 0.1 mg, 1x/day (7 injections/week)
     Route: 058
     Dates: start: 20010925
  2. LEVOTHYROXINE [Concomitant]
     Indication: BLOOD THYROID STIMULATING HORMONE DECREASED
     Dosage: UNK
     Dates: start: 19920615
  3. LEVOTHYROXINE [Concomitant]
     Indication: PRIMARY HYPOTHYROIDISM
  4. KAVEPENIN [Concomitant]
     Indication: INFECTION
     Dosage: UNK
     Dates: start: 20011214
  5. HERACILLIN [Concomitant]
     Indication: INFECTION
     Dosage: UNK
     Dates: start: 20020226
  6. CALCICHEW-D3 [Concomitant]
     Indication: CALCIUM METABOLISM DISORDER
     Dosage: UNK
     Dates: start: 20021016
  7. SPIRONOLACTON [Concomitant]
     Indication: HYPERTENSION
     Dosage: UNK
     Dates: start: 20070915
  8. HYDROCORTONE [Concomitant]
     Indication: BLOOD CORTICOTROPHIN DECREASED
     Dosage: UNK
     Dates: start: 20030729
  9. PREDNISOLON [Concomitant]
     Indication: TEMPORAL ARTERITIS
     Dosage: UNK
     Dates: start: 19920615
  10. ENALAPRIL [Concomitant]
     Indication: HYPERTENSION
     Dosage: UNK
     Dates: start: 20031006
  11. FURIX RETARD [Concomitant]
     Indication: DIURETIC THERAPY
     Dosage: UNK
     Dates: start: 20031006
  12. WARAN [Concomitant]
     Indication: PROPHYLAXIS
     Dosage: UNK
     Dates: start: 20031006
  13. SCHERIPROCT [Concomitant]
     Indication: HAEMORRHOIDS
     Dosage: UNK
     Dates: start: 20040515
  14. EMCONTOR [Concomitant]
     Indication: HYPERTENSION
     Dosage: UNK
     Dates: start: 20061202
  15. TOSTREX [Concomitant]
     Indication: BLOOD LUTEINISING HORMONE DECREASED
     Dosage: UNK
     Dates: start: 20060405
  16. TOSTREX [Concomitant]
     Indication: BLOOD FOLLICLE STIMULATING HORMONE DECREASED
  17. TOSTREX [Concomitant]
     Indication: HYPOGONADISM MALE

REACTIONS (1)
  - Pneumonia [Unknown]
